FAERS Safety Report 18734353 (Version 1)
Quarter: 2021Q1

REPORT INFORMATION
  Report Type: Report from Study
  Country: US (occurrence: US)
  Receive Date: 20210113
  Receipt Date: 20210113
  Transmission Date: 20210419
  Serious: Yes (Other)
  Sender: FDA-Public Use
  Company Number: US-SUN PHARMACEUTICAL INDUSTRIES LTD-2020R1-275180

PATIENT
  Age: 38 Year
  Sex: Female

DRUGS (1)
  1. CLONIDINE. [Suspect]
     Active Substance: CLONIDINE
     Indication: WITHDRAWAL SYNDROME
     Dosage: UNK
     Route: 065

REACTIONS (9)
  - Bradycardia [Unknown]
  - Hypothermia [Unknown]
  - Confusional state [Unknown]
  - Overdose [Unknown]
  - Somnolence [Unknown]
  - Sinus bradycardia [Unknown]
  - Miosis [Unknown]
  - Mental status changes [Unknown]
  - Hypotension [Unknown]
